FAERS Safety Report 20758727 (Version 1)
Quarter: 2022Q2

REPORT INFORMATION
  Report Type: Spontaneous
  Country: US (occurrence: US)
  Receive Date: 20220427
  Receipt Date: 20220427
  Transmission Date: 20220720
  Serious: No
  Sender: FDA-Public Use
  Company Number: US-BRISTOL-MYERS SQUIBB COMPANY-2022-020290

PATIENT
  Age: 72 Year
  Sex: Female
  Weight: 84 kg

DRUGS (1)
  1. REVLIMID [Suspect]
     Active Substance: LENALIDOMIDE
     Indication: Plasma cell myeloma
     Dosage: EVERY OTHER DAY
     Route: 048
     Dates: start: 20200717

REACTIONS (3)
  - Pruritus [Recovering/Resolving]
  - Fatigue [Recovering/Resolving]
  - Off label use [Unknown]
